FAERS Safety Report 15413801 (Version 1)
Quarter: 2018Q3

REPORT INFORMATION
  Report Type: Spontaneous
  Country: AU (occurrence: AU)
  Receive Date: 20180921
  Receipt Date: 20180921
  Transmission Date: 20181010
  Serious: Yes (Hospitalization, Other)
  Sender: FDA-Public Use
  Company Number: AU-FRESENIUS KABI-FK201809903

PATIENT
  Age: 55 Year
  Sex: Female

DRUGS (5)
  1. CARBOPLATIN (MANUFACTURER UNKNOWN) [Suspect]
     Active Substance: CARBOPLATIN
     Indication: OVARIAN CANCER
     Dosage: 385 MG/BODY (AUC) 5
     Route: 065
  2. MORPHINE [Concomitant]
     Active Substance: MORPHINE
     Indication: ABDOMINAL PAIN
  3. TAXOL [Suspect]
     Active Substance: PACLITAXEL
     Indication: OVARIAN CANCER
     Dosage: THREE WEEKLY CYCLE
     Route: 065
  4. ANTI?EMETICS [Concomitant]
     Indication: NAUSEA
  5. FLUIDS [Concomitant]
     Active Substance: UNSPECIFIED INGREDIENT
     Indication: FLUID REPLACEMENT

REACTIONS (4)
  - Escherichia infection [Unknown]
  - Febrile neutropenia [Unknown]
  - Rectal perforation [Unknown]
  - Neutropenic colitis [Unknown]
